FAERS Safety Report 10450861 (Version 10)
Quarter: 2016Q2

REPORT INFORMATION
  Report Type: Report from Study
  Country: AU (occurrence: AU)
  Receive Date: 20140912
  Receipt Date: 20160512
  Transmission Date: 20160815
  Serious: Yes (Hospitalization)
  Sender: FDA-Public Use
  Company Number: AU-B.I. PHARMACEUTICALS,INC./RIDGEFIELD-2014-BI-32991BI

PATIENT
  Age: 64 Year
  Sex: Male
  Weight: 122 kg

DRUGS (24)
  1. RAMIPRIL. [Concomitant]
     Active Substance: RAMIPRIL
     Indication: HYPERTENSION
     Dosage: 2.5 MG
     Route: 048
     Dates: start: 20120516, end: 20140710
  2. SITAGLIPTIN [Concomitant]
     Active Substance: SITAGLIPTIN
     Indication: PRODUCT USED FOR UNKNOWN INDICATION
     Dosage: 25 MG
     Route: 048
     Dates: start: 20140717, end: 20140720
  3. LANTUS [Concomitant]
     Active Substance: INSULIN GLARGINE
     Dosage: DOSE PER APPLICATION AND DAILY DOSE: 24 U/S
     Route: 058
     Dates: start: 20150210
  4. DURIDE [Concomitant]
     Indication: CARDIAC FAILURE
     Dosage: 30 MG
     Route: 048
     Dates: start: 20140710
  5. BI 1356 [Suspect]
     Active Substance: LINAGLIPTIN
     Indication: TYPE 2 DIABETES MELLITUS
     Dosage: 5 MG
     Route: 048
     Dates: end: 20140716
  6. METFORMIN [Concomitant]
     Active Substance: METFORMIN HYDROCHLORIDE
     Indication: TYPE 2 DIABETES MELLITUS
     Dosage: DOSE PER APPLICATION AND DAILY DOSE: 1500
     Route: 048
     Dates: start: 20120516, end: 20140710
  7. BETAMIN [Concomitant]
     Indication: ANAEMIA
     Dosage: 100 MG
     Route: 048
     Dates: start: 201110
  8. VITAMINERUM [Concomitant]
     Indication: SUPPLEMENTATION THERAPY
     Dosage: DAILY DOSE: T
     Route: 048
     Dates: start: 2001
  9. AMIODARONE [Concomitant]
     Active Substance: AMIODARONE
     Indication: ATRIAL FIBRILLATION
     Dosage: 600 MG
     Route: 048
     Dates: start: 20120629
  10. GLARGINE INSULIN [Concomitant]
     Active Substance: INSULIN GLARGINE
     Indication: TYPE 2 DIABETES MELLITUS
     Dosage: DOSE PER APPLICATION AND DAILY DOSE:18U/S
     Route: 058
     Dates: start: 20140720
  11. BI 1356 [Suspect]
     Active Substance: LINAGLIPTIN
     Dosage: 5 MG
     Route: 048
     Dates: start: 20150107, end: 20160317
  12. MOTILIUM [Concomitant]
     Active Substance: DOMPERIDONE
     Indication: IMPAIRED GASTRIC EMPTYING
     Dosage: DAILY DOSE: 10 MG PRN
     Route: 048
     Dates: start: 201001
  13. ASPIRIN. [Concomitant]
     Active Substance: ASPIRIN
     Indication: CORONARY ARTERY DISEASE
     Dosage: 100 MG
     Route: 048
     Dates: start: 20120516
  14. DUCUSATE SENNA [Concomitant]
     Indication: GASTROINTESTINAL MOTILITY DISORDER
     Dosage: DOSE PER APPLICATION AND DAILY DOSE: 50MG/8MG
     Route: 048
     Dates: start: 20120626
  15. OMEPRAZOLE 9A [Concomitant]
     Indication: GASTROOESOPHAGEAL REFLUX PROPHYLAXIS
     Dosage: 40 MG
     Route: 048
     Dates: start: 20120911
  16. LANTUS [Concomitant]
     Active Substance: INSULIN GLARGINE
     Dosage: STRENGTH: 20 U/S TO 50 U/S, DOSE PER APPLICATION AND DAILY DOSE: UPTITRATION
     Route: 058
  17. LANTUS [Concomitant]
     Active Substance: INSULIN GLARGINE
     Dosage: DOSE PER APPLICATION AND DAILY DOSE: 22 U/S
     Route: 058
     Dates: start: 20150227
  18. LANTUS [Concomitant]
     Active Substance: INSULIN GLARGINE
     Dosage: DOSE PER APPLICATION AND DAILY DOSE: 50 U/S
     Route: 058
     Dates: start: 20150713
  19. LIPITOR [Concomitant]
     Active Substance: ATORVASTATIN CALCIUM
     Indication: HYPERLIPIDAEMIA
     Dosage: 80 MG
     Route: 048
     Dates: start: 2006
  20. PLAVIX [Concomitant]
     Active Substance: CLOPIDOGREL BISULFATE
     Indication: CEREBROVASCULAR ACCIDENT
     Dosage: 75 MG
     Route: 048
     Dates: start: 2007, end: 20151109
  21. LASIX [Concomitant]
     Active Substance: FUROSEMIDE
     Indication: CARDIAC FAILURE CONGESTIVE
     Dosage: 20 MG
     Route: 048
     Dates: start: 20120628, end: 20140710
  22. STEMITIL [Concomitant]
     Indication: IMPAIRED GASTRIC EMPTYING
     Dosage: 10 MG
     Route: 048
     Dates: start: 2007
  23. PARACETAMOL [Concomitant]
     Active Substance: ACETAMINOPHEN
     Indication: PAIN
     Dosage: DAILY DOSE: 1000 MG PRN
     Route: 048
     Dates: start: 20120624
  24. LANTUS [Concomitant]
     Active Substance: INSULIN GLARGINE
     Indication: TYPE 2 DIABETES MELLITUS
     Dosage: DOSE PER APPLICATION AND DAILY DOSE: 20 U/S
     Route: 058
     Dates: start: 20150218

REACTIONS (9)
  - Activities of daily living impaired [Recovered/Resolved]
  - Acute kidney injury [Recovered/Resolved]
  - Chronic kidney disease [Unknown]
  - Anaemia [Recovered/Resolved]
  - Chest pain [Recovered/Resolved]
  - Gastroenteritis [Recovered/Resolved]
  - Diarrhoea [Recovered/Resolved]
  - Chest pain [Recovered/Resolved]
  - Cough [Recovered/Resolved]

NARRATIVE: CASE EVENT DATE: 20140707
